FAERS Safety Report 4373413-4 (Version None)
Quarter: 2004Q2

REPORT INFORMATION
  Report Type: 
  Country: None (occurrence: None)
  Receive Date: 20040607
  Receipt Date: 20030627
  Transmission Date: 20050107
  Serious: Yes (Other)
  Sender: FDA-Public Use
  Company Number: 341289

PATIENT
  Age: 23 Year
  Sex: Female
  Weight: 59 kg

DRUGS (2)
  1. ACCUTANE [Suspect]
     Indication: ACNE
     Dosage: 60 MG DAILY ORAL
     Route: 048
     Dates: start: 20020605, end: 20020617
  2. BIRTH CONTROL PILL (ORAL CONTRACEPTIVE NOS) [Concomitant]

REACTIONS (7)
  - EYE SWELLING [None]
  - HYPERSENSITIVITY [None]
  - LYMPHADENOPATHY [None]
  - PRURITUS [None]
  - RASH [None]
  - SWELLING [None]
  - URTICARIA [None]
